FAERS Safety Report 21243181 (Version 2)
Quarter: 2022Q3

REPORT INFORMATION
  Report Type: Spontaneous
  Country: US (occurrence: US)
  Receive Date: 20220823
  Receipt Date: 20220920
  Transmission Date: 20221026
  Serious: No
  Sender: FDA-Public Use
  Company Number: US-PFIZER INC-202201074608

PATIENT
  Age: 64 Year
  Sex: Female
  Weight: 69.85 kg

DRUGS (2)
  1. PAXLOVID [Suspect]
     Active Substance: NIRMATRELVIR\RITONAVIR
     Indication: COVID-19 treatment
     Dosage: 3 DF, 2X/DAY (TOOK 3 PILLS TWICE A DAY)
     Dates: start: 20220806, end: 20220810
  2. DAYTIME [Concomitant]
     Dosage: UNK, AS NEEDED (OFF AND ON AS NEEDED, RARELY MORE THAN ONE DOSE ABOUT EVERY OTHER DAY)
     Dates: start: 202208, end: 20220824

REACTIONS (2)
  - COVID-19 [Recovered/Resolved]
  - Disease recurrence [Recovered/Resolved]

NARRATIVE: CASE EVENT DATE: 20220818
